FAERS Safety Report 6731103-4 (Version None)
Quarter: 2010Q2

REPORT INFORMATION
  Report Type: 
  Country: None (occurrence: None)
  Receive Date: 20100518
  Receipt Date: 20100506
  Transmission Date: 20101027
  Serious: Yes (Other)
  Sender: FDA-Public Use
  Company Number: US-SANOFI-AVENTIS-2010SA026752

PATIENT
  Age: 83 Year
  Sex: Male

DRUGS (4)
  1. PLAVIX [Suspect]
     Route: 048
     Dates: start: 20000101, end: 20090101
  2. PLAVIX [Suspect]
     Indication: THROMBOSIS PROPHYLAXIS
     Route: 048
     Dates: start: 20000101, end: 20090101
  3. PLAVIX [Suspect]
     Route: 048
     Dates: start: 20090101
  4. PLAVIX [Suspect]
     Route: 048
     Dates: start: 20090101

REACTIONS (4)
  - ARTHRITIS [None]
  - BLEEDING TIME PROLONGED [None]
  - PHARYNGEAL DISORDER [None]
  - UNDERDOSE [None]
